FAERS Safety Report 5354365-7 (Version None)
Quarter: 2007Q2

REPORT INFORMATION
  Report Type: 
  Country: None (occurrence: None)
  Receive Date: 20070521
  Receipt Date: 20070213
  Transmission Date: 20071010
  Serious: No
  Sender: FDA-Public Use
  Company Number: WAES 0702USA02475

PATIENT
  Age: 52 Year
  Sex: Male
  Weight: 107.0489 kg

DRUGS (8)
  1. JANUVIA [Suspect]
     Indication: DIABETES MELLITUS
     Dosage: 100 MG DAILY PO
     Route: 048
     Dates: start: 20061226, end: 20070101
  2. ACTOS [Concomitant]
  3. CENTRUM [Concomitant]
  4. CIALIS [Concomitant]
  5. GLUCOPHAGE [Concomitant]
  6. GLUCOTROL XL [Concomitant]
  7. LIPITOR [Concomitant]
  8. LOTREL [Concomitant]

REACTIONS (2)
  - RHINORRHOEA [None]
  - SINUS CONGESTION [None]
